FAERS Safety Report 24338343 (Version 1)
Quarter: 2024Q3

REPORT INFORMATION
  Report Type: Report from Study
  Country: CA (occurrence: None)
  Receive Date: 20240919
  Receipt Date: 20240919
  Transmission Date: 20241017
  Serious: Yes (Hospitalization)
  Sender: ORION
  Company Number: CA-PFIZER INC-202400258277

PATIENT
  Sex: Male

DRUGS (2)
  1. METHOTREXATE [Interacting]
     Active Substance: METHOTREXATE
     Indication: Product used for unknown indication
  2. RINVOQ [Interacting]
     Active Substance: UPADACITINIB
     Indication: Rheumatoid arthritis

REACTIONS (2)
  - Drug interaction [Unknown]
  - Rheumatoid arthritis [Unknown]
